FAERS Safety Report 8936632 (Version 3)
Quarter: 2013Q1

REPORT INFORMATION
  Report Type: Spontaneous
  Country: JP (occurrence: JP)
  Receive Date: 20121130
  Receipt Date: 20130211
  Transmission Date: 20140127
  Serious: Yes (Hospitalization)
  Sender: FDA-Public Use
  Company Number: JP-PFIZER INC-2012205543

PATIENT
  Age: 18 Year
  Sex: Male
  Weight: 22.2 kg

DRUGS (16)
  1. VFEND [Suspect]
     Indication: BRONCHOPULMONARY ASPERGILLOSIS
     Dosage: 300 MG, 1X/DAY
     Route: 048
  2. VFEND [Suspect]
     Dosage: 100 MG, 1X/DAY
     Route: 048
  3. PROGRAF [Suspect]
     Dosage: 0.4 MG, 2X/DAY
  4. PROGRAF [Suspect]
     Dosage: 2 MG, 2X/DAY
  5. PREDONINE [Concomitant]
     Dosage: 10 MG, 1X/DAY
  6. EXCEGRAN [Concomitant]
     Dosage: 25 MG, 2X/DAY
  7. TAKEPRON [Concomitant]
     Dosage: 30 NG, 1X/DAY
  8. BACTRAMIN [Concomitant]
     Dosage: 1 G, 1X/DAY
  9. ONE-ALPHA [Concomitant]
     Dosage: 1 ML, 1X/DAY
  10. BIOFERMIN R [Concomitant]
     Dosage: 1 G, 3X/DAY
  11. LASIX [Concomitant]
     Dosage: 5 MG, 1X/DAY
  12. VALIXA [Concomitant]
     Dosage: 450 MG, 1X/DAY
  13. HOKUNALIN [Concomitant]
     Dosage: 1 MG, 1X/DAY
  14. ATARAX-P [Concomitant]
     Dosage: UNK
  15. DORMICUM [Concomitant]
     Dosage: UNK
  16. RISPERDAL [Concomitant]
     Dosage: UNK

REACTIONS (4)
  - Restlessness [Recovered/Resolved]
  - Hallucination [Recovered/Resolved]
  - Visual impairment [Recovered/Resolved]
  - Liver function test abnormal [Recovered/Resolved]
